FAERS Safety Report 9294512 (Version 35)
Quarter: 2015Q3

REPORT INFORMATION
  Report Type: Report from Study
  Country: CA (occurrence: CA)
  Receive Date: 20130517
  Receipt Date: 20150918
  Transmission Date: 20151125
  Serious: Yes (Life-Threatening, Hospitalization, Other)
  Sender: FDA-Public Use
  Company Number: CA-ROCHE-1154826

PATIENT
  Age: 51 Year
  Sex: Female
  Weight: 57 kg

DRUGS (14)
  1. AVASTIN [Suspect]
     Active Substance: BEVACIZUMAB
     Route: 042
     Dates: start: 20130910
  2. TOPAMAX [Suspect]
     Active Substance: TOPIRAMATE
     Dosage: 2 TABLETS PER DAY
     Route: 065
  3. AVASTIN [Suspect]
     Active Substance: BEVACIZUMAB
     Route: 042
     Dates: start: 20130625
  4. METHYLPREDNISOLONE SODIUM SUCCINATE. [Concomitant]
     Active Substance: METHYLPREDNISOLONE SODIUM SUCCINATE
     Route: 042
     Dates: start: 20130121, end: 20130121
  5. METHYLPREDNISOLONE SODIUM SUCCINATE. [Concomitant]
     Active Substance: METHYLPREDNISOLONE SODIUM SUCCINATE
     Indication: PREMEDICATION
     Route: 042
     Dates: start: 20130204, end: 20130625
  6. RESTORALAX [Concomitant]
     Active Substance: POLYETHYLENE GLYCOL 3350
  7. AVASTIN [Suspect]
     Active Substance: BEVACIZUMAB
     Indication: GLIOBLASTOMA
     Route: 042
     Dates: start: 20121012
  8. AVASTIN [Suspect]
     Active Substance: BEVACIZUMAB
     Route: 042
     Dates: start: 20140224, end: 20150707
  9. ACCURETIC [Suspect]
     Active Substance: HYDROCHLOROTHIAZIDE\QUINAPRIL HYDROCHLORIDE
     Indication: HYPERTENSION
     Dosage: 20/12.5 MG
     Route: 048
     Dates: start: 20130321, end: 201304
  10. AVASTIN [Suspect]
     Active Substance: BEVACIZUMAB
     Indication: POST PROCEDURAL OEDEMA
     Route: 042
     Dates: start: 20130304
  11. ZANTAC [Concomitant]
     Active Substance: RANITIDINE HYDROCHLORIDE
     Dosage: DISCONTINUED
     Route: 065
  12. TOPAMAX [Suspect]
     Active Substance: TOPIRAMATE
     Indication: HEADACHE
     Route: 065
     Dates: start: 2015
  13. BENADRYL [Concomitant]
     Active Substance: DIPHENHYDRAMINE HYDROCHLORIDE
     Indication: PREMEDICATION
     Route: 048
     Dates: start: 20121012, end: 20130625
  14. DECADRON [Concomitant]
     Active Substance: DEXAMETHASONE
     Dosage: DISCONTINUED
     Route: 065

REACTIONS (49)
  - Abdominal pain lower [Unknown]
  - Somnolence [Unknown]
  - Vomiting [Recovered/Resolved]
  - Frequent bowel movements [Not Recovered/Not Resolved]
  - Sleep disorder [Unknown]
  - Weight decreased [Unknown]
  - Heart rate increased [Recovering/Resolving]
  - Pneumonia [Unknown]
  - Vertigo [Not Recovered/Not Resolved]
  - Cyst [Unknown]
  - Dysphagia [Not Recovered/Not Resolved]
  - Dizziness [Recovered/Resolved]
  - Abdominal pain [Not Recovered/Not Resolved]
  - Abdominal pain [Recovered/Resolved]
  - Hypertension [Not Recovered/Not Resolved]
  - Heart rate irregular [Unknown]
  - Oropharyngeal pain [Unknown]
  - Sinusitis [Recovered/Resolved]
  - Silent myocardial infarction [Unknown]
  - Nausea [Recovered/Resolved]
  - Seizure [Recovered/Resolved]
  - Pulmonary embolism [Unknown]
  - Headache [Not Recovered/Not Resolved]
  - Catheter site erythema [Unknown]
  - Catheter site pruritus [Unknown]
  - Somnolence [Not Recovered/Not Resolved]
  - Epistaxis [Recovered/Resolved]
  - Musculoskeletal pain [Not Recovered/Not Resolved]
  - Breakthrough pain [Recovering/Resolving]
  - Chest pain [Not Recovered/Not Resolved]
  - Arrhythmia [Unknown]
  - Seizure [Recovered/Resolved]
  - Blood pressure increased [Unknown]
  - Pain [Not Recovered/Not Resolved]
  - Catheter site pain [Unknown]
  - Blood pressure decreased [Recovered/Resolved]
  - Pallor [Unknown]
  - Insomnia [Unknown]
  - Weight increased [Unknown]
  - Bone disorder [Unknown]
  - Sinus tachycardia [Not Recovered/Not Resolved]
  - Food poisoning [Recovered/Resolved]
  - Weight fluctuation [Unknown]
  - Abdominal pain upper [Unknown]
  - Arthralgia [Not Recovered/Not Resolved]
  - Feeling hot [Unknown]
  - Periarthritis [Not Recovered/Not Resolved]
  - Dementia [Not Recovered/Not Resolved]
  - Drug effect decreased [Unknown]

NARRATIVE: CASE EVENT DATE: 20121126
